FAERS Safety Report 4663740-5 (Version None)
Quarter: 2005Q2

REPORT INFORMATION
  Report Type: 
  Country: None (occurrence: None)
  Receive Date: 20050516
  Receipt Date: 20050504
  Transmission Date: 20051028
  Serious: Yes (Other)
  Sender: FDA-Public Use
  Company Number: 2005072219

PATIENT
  Sex: Female
  Weight: 72.5755 kg

DRUGS (4)
  1. BEXTRA [Suspect]
     Indication: ARTHROPATHY
     Dosage: 20 MG (20 MG, 1 IN 1 D), ORAL
     Route: 048
  2. FLUOXETINE HCL [Concomitant]
  3. PROVELLA-14 (ESTROGENS CONJUGATED, MEDROXYPROGESTERONE ACETATE) [Concomitant]
  4. ALPRAZOLAM [Concomitant]

REACTIONS (3)
  - ARTHRALGIA [None]
  - COLONIC POLYP [None]
  - DRUG INEFFECTIVE [None]
